FAERS Safety Report 23644326 (Version 1)
Quarter: 2024Q1

REPORT INFORMATION
  Report Type: Spontaneous
  Country: GB (occurrence: GB)
  Receive Date: 20240318
  Receipt Date: 20240318
  Transmission Date: 20240409
  Serious: Yes (Other)
  Sender: FDA-Public Use
  Company Number: GB-PFIZER INC-202400065435

PATIENT
  Sex: Female

DRUGS (2)
  1. RUXIENCE [Suspect]
     Active Substance: RITUXIMAB-PVVR
     Indication: Follicular lymphoma
     Dosage: HAD A TOTAL OF 4 INFUSIONS OF RITUXIMAB
     Dates: end: 20240117
  2. BENDAMUSTINE [Concomitant]
     Active Substance: BENDAMUSTINE

REACTIONS (5)
  - Deafness [Not Recovered/Not Resolved]
  - Pyrexia [Unknown]
  - Oedema [Unknown]
  - Rash [Unknown]
  - Serum sickness [Unknown]
